FAERS Safety Report 14971713 (Version 1)
Quarter: 2018Q2

REPORT INFORMATION
  Report Type: Spontaneous
  Country: GT (occurrence: GT)
  Receive Date: 20180604
  Receipt Date: 20180604
  Transmission Date: 20180711
  Serious: Yes (Other)
  Sender: FDA-Public Use
  Company Number: GT-MERCK KGAA-2048980

PATIENT
  Sex: Female

DRUGS (2)
  1. NOVOTHYROX [Concomitant]
     Active Substance: LEVOTHYROXINE SODIUM
  2. NOVOTHYROX [Suspect]
     Active Substance: LEVOTHYROXINE SODIUM
     Indication: HYPERTHYROIDISM

REACTIONS (5)
  - Vision blurred [None]
  - Tri-iodothyronine free increased [None]
  - Tachycardia [None]
  - Headache [None]
  - Thyroxine increased [None]
